FAERS Safety Report 7212365-6 (Version None)
Quarter: 2011Q1

REPORT INFORMATION
  Report Type: 
  Country: None (occurrence: None)
  Receive Date: 20110106
  Receipt Date: 20110104
  Transmission Date: 20110831
  Serious: Yes (Death)
  Sender: FDA-Public Use
  Company Number: PHHY2011BR00538

PATIENT
  Sex: Male

DRUGS (2)
  1. GALVUS [Suspect]
     Dosage: 100 MG, UNK
     Route: 048
  2. EXELON [Suspect]
     Dosage: 3 MG, UNK
     Route: 048

REACTIONS (1)
  - DEATH [None]
